FAERS Safety Report 24133152 (Version 1)
Quarter: 2024Q3

REPORT INFORMATION
  Report Type: Report from Study
  Country: US (occurrence: US)
  Receive Date: 20240724
  Receipt Date: 20240724
  Transmission Date: 20241017
  Serious: Yes (Hospitalization, Other)
  Sender: HLS THERAPEUTICS
  Company Number: US-HLS-202400300

PATIENT
  Age: 65 Year
  Sex: Female

DRUGS (1)
  1. CLOZAPINE [Suspect]
     Active Substance: CLOZAPINE
     Indication: Product used for unknown indication
     Dosage: 100 MG
     Route: 048
     Dates: end: 20240703

REACTIONS (5)
  - Loss of personal independence in daily activities [Unknown]
  - Bipolar disorder [Unknown]
  - Illness [Unknown]
  - Mania [Unknown]
  - Tardive dyskinesia [Not Recovered/Not Resolved]
